FAERS Safety Report 15473948 (Version 1)
Quarter: 2018Q4

REPORT INFORMATION
  Report Type: Report from Study
  Country: US (occurrence: US)
  Receive Date: 20181008
  Receipt Date: 20181008
  Transmission Date: 20190205
  Serious: Yes (Hospitalization, Other)
  Sender: FDA-Public Use
  Company Number: US-SHIRE-US201838030

PATIENT
  Age: 50 Year
  Sex: Female

DRUGS (2)
  1. HUMAN NORMAL IMMUNOGLOBULIN; LIQUID [Suspect]
     Active Substance: HUMAN IMMUNOGLOBULIN G
     Indication: PRIMARY IMMUNODEFICIENCY SYNDROME
     Route: 042
  2. HUMAN NORMAL IMMUNOGLOBULIN; LIQUID [Suspect]
     Active Substance: HUMAN IMMUNOGLOBULIN G
     Dosage: UNK
     Route: 058

REACTIONS (10)
  - Autoimmune disorder [Unknown]
  - Swelling [Unknown]
  - Weight increased [Unknown]
  - Respiratory failure [Unknown]
  - Pneumonia [Unknown]
  - Eye swelling [Unknown]
  - Meningitis aseptic [Unknown]
  - Fatigue [Unknown]
  - Renal impairment [Unknown]
  - Rash [Unknown]

NARRATIVE: CASE EVENT DATE: 20181001
